FAERS Safety Report 6326992-1 (Version None)
Quarter: 2009Q3

REPORT INFORMATION
  Report Type: 
  Country: None (occurrence: None)
  Receive Date: 20090821
  Receipt Date: 20090810
  Transmission Date: 20100115
  Serious: Yes (Disabling)
  Sender: FDA-Public Use
  Company Number: ADR12292009

PATIENT
  Age: 75 Year
  Sex: Female

DRUGS (6)
  1. PRAVASTATIN SODIUM [Suspect]
  2. ACTONEL [Concomitant]
  3. PERINDOPRIL [Concomitant]
  4. CALCICHEW [Concomitant]
  5. DOCUSATE [Concomitant]
  6. LEVOTHYROXINE SODIUM [Concomitant]

REACTIONS (2)
  - GAIT DISTURBANCE [None]
  - PERIPHERAL SENSORY NEUROPATHY [None]
